FAERS Safety Report 8240117-7 (Version None)
Quarter: 2012Q1

REPORT INFORMATION
  Report Type: 
  Country: None (occurrence: None)
  Receive Date: 20120328
  Receipt Date: 20120322
  Transmission Date: 20120608
  Serious: Yes (Hospitalization, Other)
  Sender: FDA-Public Use
  Company Number: US-GILEAD-2012-0051932

PATIENT
  Sex: Male

DRUGS (6)
  1. TYVASO [Concomitant]
  2. ADCIRCA [Concomitant]
  3. LETAIRIS [Suspect]
     Indication: UNEVALUABLE EVENT
  4. LETAIRIS [Suspect]
     Indication: PORTOPULMONARY HYPERTENSION
  5. LETAIRIS [Suspect]
     Indication: TRANSPLANT
  6. LETAIRIS [Suspect]
     Indication: PULMONARY HYPERTENSION
     Dosage: 10 MG, UNK
     Route: 048
     Dates: start: 20120218

REACTIONS (4)
  - CHEST PAIN [None]
  - VOMITING [None]
  - GASTROINTESTINAL MOTILITY DISORDER [None]
  - GASTRIC DISORDER [None]
